FAERS Safety Report 11913209 (Version 2)
Quarter: 2016Q1

REPORT INFORMATION
  Report Type: Report from Study
  Country: KR (occurrence: KR)
  Receive Date: 20160113
  Receipt Date: 20160118
  Transmission Date: 20160526
  Serious: Yes (Hospitalization)
  Sender: FDA-Public Use
  Company Number: KR-B.I. PHARMACEUTICALS,INC./RIDGEFIELD-2015-BI-47843BI

PATIENT
  Age: 74 Year
  Sex: Female
  Weight: 57.7 kg

DRUGS (4)
  1. AFATINIB [Suspect]
     Active Substance: AFATINIB
     Route: 048
     Dates: start: 20151120
  2. AFATINIB [Suspect]
     Active Substance: AFATINIB
     Indication: NON-SMALL CELL LUNG CANCER
     Route: 048
     Dates: start: 20130912, end: 20150811
  3. DICKNOL-DICLOFENAC [Concomitant]
     Indication: HEADACHE
     Dosage: 90 MG
     Route: 042
     Dates: start: 20150829
  4. AFATINIB [Suspect]
     Active Substance: AFATINIB
     Route: 048
     Dates: start: 20150915, end: 20151108

REACTIONS (4)
  - Pituitary tumour recurrent [Recovered/Resolved]
  - Vomiting [Recovered/Resolved]
  - Malignant pituitary tumour [Recovered/Resolved]
  - Dizziness [Recovered/Resolved]

NARRATIVE: CASE EVENT DATE: 20150805
